FAERS Safety Report 8491612-7 (Version None)
Quarter: 2012Q3

REPORT INFORMATION
  Report Type: 
  Country: None (occurrence: None)
  Receive Date: 20120706
  Receipt Date: 20120525
  Transmission Date: 20120928
  Serious: No
  Sender: FDA-Public Use
  Company Number: US-BAYER-2012-053344

PATIENT
  Age: 83 Year
  Sex: Female
  Weight: 53 kg

DRUGS (5)
  1. VITAMIN B-12 [Concomitant]
  2. ALEVE (CAPLET) [Suspect]
     Indication: BACK PAIN
     Dosage: 1 DF, BID
     Route: 048
     Dates: start: 20120518, end: 20120525
  3. VITAMIN D [Concomitant]
  4. ASCORBIC ACID [Concomitant]
  5. CALCIUM CARBONATE [Concomitant]

REACTIONS (1)
  - BACK PAIN [None]
